FAERS Safety Report 10207405 (Version 1)
Quarter: 2014Q2

REPORT INFORMATION
  Report Type: Spontaneous
  Country: US (occurrence: None)
  Receive Date: 20140529
  Receipt Date: 20140529
  Transmission Date: 20141212
  Serious: Yes (Other)
  Sender: FDA-Public Use
  Company Number: None

PATIENT
  Age: 19 Month
  Sex: Female
  Weight: 10.52 kg

DRUGS (1)
  1. PREDNISOLONE [Suspect]
     Indication: CROUP INFECTIOUS
     Dosage: 4 DAYS 2.5 ML TWICE DAILY TAKEN BY MOUTH
     Route: 048

REACTIONS (2)
  - Drug dispensing error [None]
  - Product label issue [None]
